FAERS Safety Report 8956168 (Version 2)
Quarter: 2013Q1

REPORT INFORMATION
  Report Type: Report from Study
  Country: JP (occurrence: JP)
  Receive Date: 20121210
  Receipt Date: 20130319
  Transmission Date: 20140127
  Serious: Yes (Death)
  Sender: FDA-Public Use
  Company Number: PHHY2012JP112740

PATIENT
  Age: 65 Year
  Sex: Male

DRUGS (6)
  1. FTY 720 [Suspect]
     Indication: MULTIPLE SCLEROSIS RELAPSE
     Dosage: 0.5 MG, QD
     Route: 048
     Dates: start: 20120531, end: 20121031
  2. FTY 720 [Suspect]
     Dosage: 0.5 MG, UNK
     Route: 048
     Dates: start: 20121109, end: 20121113
  3. TEGRETOL [Concomitant]
     Dosage: 400 MG, UNK
     Route: 048
  4. HARNAL [Concomitant]
     Dosage: 0.2 MG, UNK
     Route: 048
  5. UBRETID [Concomitant]
     Dosage: 5 MG, UNK
     Route: 048
  6. TAKEPRON [Concomitant]
     Dosage: UNK

REACTIONS (3)
  - Gastric cancer [Fatal]
  - Metastases to liver [Fatal]
  - Gamma-glutamyltransferase increased [Fatal]
